FAERS Safety Report 4312071-1 (Version None)
Quarter: 2004Q1

REPORT INFORMATION
  Report Type: 
  Country: None (occurrence: None)
  Receive Date: 20040303
  Receipt Date: 20040220
  Transmission Date: 20041129
  Serious: Yes (Hospitalization)
  Sender: FDA-Public Use
  Company Number: HQWYE198520FEB04

PATIENT
  Age: 47 Year
  Sex: Female

DRUGS (4)
  1. CHILDREN'S ADVIL [Suspect]
     Indication: PYREXIA
     Dosage: ORAL
     Route: 048
     Dates: start: 20040117, end: 20040120
  2. ACETAMINOPHEN [Suspect]
     Indication: PYREXIA
     Dosage: ORAL
     Route: 048
     Dates: start: 20040117, end: 20040120
  3. PALUDRINE [Concomitant]
  4. NIVAQUINE (CHLOROQUINE SULFATE) [Concomitant]

REACTIONS (10)
  - ACIDOSIS [None]
  - ALANINE AMINOTRANSFERASE INCREASED [None]
  - C-REACTIVE PROTEIN INCREASED [None]
  - DIARRHOEA [None]
  - FATIGUE [None]
  - GASTROENTERITIS VIRAL [None]
  - INFLAMMATION [None]
  - MEDICATION ERROR [None]
  - PYREXIA [None]
  - VOMITING [None]
